FAERS Safety Report 4559451-7 (Version None)
Quarter: 2005Q1

REPORT INFORMATION
  Report Type: 
  Country: None (occurrence: None)
  Receive Date: 20050124
  Receipt Date: 20050117
  Transmission Date: 20050727
  Serious: Yes (Other)
  Sender: FDA-Public Use
  Company Number: US-JNJFOC-20041004915

PATIENT
  Sex: Female
  Weight: 87.09 kg

DRUGS (8)
  1. TOPAMAX [Suspect]
     Indication: TREMOR
     Route: 049
  2. COUMADIN [Concomitant]
  3. TOPROL-XL [Concomitant]
  4. SYNTHROID [Concomitant]
  5. DYAZIDE [Concomitant]
  6. DYAZIDE [Concomitant]
  7. VITAMIN D [Concomitant]
  8. CALCIUM GLUCONATE [Concomitant]

REACTIONS (5)
  - CONFUSIONAL STATE [None]
  - FALL [None]
  - SYNCOPE [None]
  - TACHYCARDIA [None]
  - VISION BLURRED [None]
